FAERS Safety Report 6322953-7 (Version None)
Quarter: 2009Q3

REPORT INFORMATION
  Report Type: 
  Country: None (occurrence: None)
  Receive Date: 20090824
  Receipt Date: 20090220
  Transmission Date: 20100115
  Serious: No
  Sender: FDA-Public Use
  Company Number: US-ABBOTT-09P-163-0558849-00

PATIENT
  Sex: Female
  Weight: 78.088 kg

DRUGS (2)
  1. NIASPAN [Suspect]
     Indication: BLOOD CHOLESTEROL INCREASED
     Route: 048
     Dates: start: 20080701, end: 20090101
  2. NIASPAN [Suspect]
     Dates: start: 20090201

REACTIONS (2)
  - COELIAC DISEASE [None]
  - DIARRHOEA [None]
